FAERS Safety Report 8246243-0 (Version None)
Quarter: 2012Q1

REPORT INFORMATION
  Report Type: 
  Country: None (occurrence: None)
  Receive Date: 20120328
  Receipt Date: 20120328
  Transmission Date: 20120608
  Serious: Yes (Hospitalization, Other)
  Sender: FDA-Public Use
  Company Number: None

PATIENT
  Age: 28 Year
  Sex: Female
  Weight: 68.4932 kg

DRUGS (4)
  1. LAMICTAL [Suspect]
     Indication: CONVULSION
     Dosage: 200 MG. 2 X DAY
  2. KEPPRA [Concomitant]
  3. LAMICTAL [Suspect]
     Dosage: 100 MG 2 X DAY
  4. TOPAMAX [Concomitant]

REACTIONS (8)
  - PURULENCE [None]
  - RASH PAPULAR [None]
  - RED BLOOD CELL SEDIMENTATION RATE INCREASED [None]
  - THYROID DISORDER [None]
  - BLOOD DISORDER [None]
  - INFLAMMATION [None]
  - GAIT DISTURBANCE [None]
  - PAIN IN EXTREMITY [None]
